FAERS Safety Report 14700996 (Version 3)
Quarter: 2020Q3

REPORT INFORMATION
  Report Type: Report from Study
  Country: US (occurrence: US)
  Receive Date: 20180330
  Receipt Date: 20180504
  Transmission Date: 20201105
  Serious: Yes (Hospitalization)
  Sender: FDA-Public Use
  Company Number: US-JNJFOC-20180333516

PATIENT
  Age: 81 Year
  Sex: Female
  Weight: 83.01 kg

DRUGS (21)
  1. DARATUMUMAB [Suspect]
     Active Substance: DARATUMUMAB
     Indication: AMYLOIDOSIS
     Dosage: C2 D8
     Route: 058
     Dates: start: 20180424
  2. CYCLOPHOSPHAMIDE. [Suspect]
     Active Substance: CYCLOPHOSPHAMIDE
     Indication: AMYLOIDOSIS
     Dosage: DAYS 1, 8, 15, AND 22; 300 MG/M2
     Route: 042
     Dates: start: 20180320
  3. VIGAMOX [Concomitant]
     Active Substance: MOXIFLOXACIN HYDROCHLORIDE
     Dates: start: 20170111, end: 20180326
  4. BORTEZOMIB. [Suspect]
     Active Substance: BORTEZOMIB
     Indication: AMYLOIDOSIS
     Dosage: ON DAYS 1,8,15, AND 22
     Route: 058
     Dates: start: 20180320
  5. ATORVASTATIN [Concomitant]
     Active Substance: ATORVASTATIN
  6. TRAZODONE [Concomitant]
     Active Substance: TRAZODONE HYDROCHLORIDE
     Indication: DEPRESSION
     Route: 048
  7. FENTANYL. [Concomitant]
     Active Substance: FENTANYL
     Indication: BACK PAIN
     Dosage: 1 PATCH
     Route: 062
  8. GALANTAMINE HYDROBROMIDE. [Concomitant]
     Active Substance: GALANTAMINE HYDROBROMIDE
     Indication: DEMENTIA
     Dates: start: 20170302
  9. OMEPRAZOLE. [Concomitant]
     Active Substance: OMEPRAZOLE
     Dates: end: 20180326
  10. GABAPENTIN. [Concomitant]
     Active Substance: GABAPENTIN
  11. ZOLPIDEM [Concomitant]
     Active Substance: ZOLPIDEM TARTRATE
     Route: 048
  12. ALLOPURINOL. [Concomitant]
     Active Substance: ALLOPURINOL
     Route: 048
  13. LEVOTHYROXINE. [Concomitant]
     Active Substance: LEVOTHYROXINE
     Indication: HYPOTHYROIDISM
     Dates: start: 20170302, end: 20180326
  14. LISINOPRIL. [Concomitant]
     Active Substance: LISINOPRIL
     Indication: ESSENTIAL HYPERTENSION
     Dates: start: 20170302, end: 20180326
  15. SAVELLA [Concomitant]
     Active Substance: MILNACIPRAN HYDROCHLORIDE
     Indication: FIBROMYALGIA
     Dates: start: 20170224
  16. DARATUMUMAB [Suspect]
     Active Substance: DARATUMUMAB
     Indication: AMYLOIDOSIS
     Dosage: ON DAYS 1,8,15,22 OF CYCLES 1 AND 2; DAYS 1, 15 C3?C6
     Route: 058
     Dates: start: 20180320
  17. DEXAMETHASONE. [Suspect]
     Active Substance: DEXAMETHASONE
     Indication: AMYLOIDOSIS
     Dosage: ON DAYS 1,2,8,9,15,16,22, AND 23
     Route: 042
     Dates: start: 20180320
  18. WARFARIN [Concomitant]
     Active Substance: WARFARIN
     Dates: end: 20180321
  19. FUROSEMIDE. [Concomitant]
     Active Substance: FUROSEMIDE
     Indication: CARDIAC FAILURE CONGESTIVE
     Route: 048
     Dates: start: 20170417
  20. OXYCODONE [Concomitant]
     Active Substance: OXYCODONE
     Indication: BACK PAIN
     Route: 048
  21. CALCIUM [Concomitant]
     Active Substance: CALCIUM
     Route: 048

REACTIONS (1)
  - Acute kidney injury [Unknown]

NARRATIVE: CASE EVENT DATE: 20180320
